FAERS Safety Report 5822680-6 (Version None)
Quarter: 2008Q3

REPORT INFORMATION
  Report Type: 
  Country: None (occurrence: None)
  Receive Date: 20080725
  Receipt Date: 20080710
  Transmission Date: 20090109
  Serious: Yes (Other)
  Sender: FDA-Public Use
  Company Number: US-BAYER-200812784BCC

PATIENT

DRUGS (2)
  1. ASPIRIN [Suspect]
     Indication: CEREBROVASCULAR ACCIDENT
  2. PLAVIX [Suspect]
     Indication: CEREBROVASCULAR ACCIDENT

REACTIONS (2)
  - CEREBROVASCULAR ACCIDENT [None]
  - REBOUND EFFECT [None]
